FAERS Safety Report 9020431 (Version 1)
Quarter: 2013Q1

REPORT INFORMATION
  Report Type: Spontaneous
  Country: None (occurrence: US)
  Receive Date: 20130119
  Receipt Date: 20130119
  Transmission Date: 20140127
  Serious: No
  Sender: FDA-Public Use
  Company Number: US-ALLERGAN-1208506US

PATIENT
  Age: 23 Year
  Sex: Male

DRUGS (2)
  1. BOTOX COSMETIC [Suspect]
     Indication: SKIN WRINKLING
     Dosage: DEFINED AS SMALL AMOUNT
     Route: 030
     Dates: start: 2010, end: 2010
  2. MAYBE ANTIBIOTIC FOR ACNE [Concomitant]
     Indication: ACNE
     Dosage: UNK

REACTIONS (2)
  - Vision blurred [Recovering/Resolving]
  - Swelling face [Unknown]
